FAERS Safety Report 20918683 (Version 1)
Quarter: 2022Q2

REPORT INFORMATION
  Report Type: Spontaneous
  Country: US (occurrence: US)
  Receive Date: 20220606
  Receipt Date: 20220606
  Transmission Date: 20220720
  Serious: No
  Sender: FDA-Public Use
  Company Number: US-GLENMARK PHARMACEUTICALS-2021GMK067462

PATIENT

DRUGS (4)
  1. TACROLIMUS [Suspect]
     Active Substance: TACROLIMUS
     Indication: Lip dry
     Dosage: UNK (LIP)
     Route: 061
  2. TACROLIMUS [Suspect]
     Active Substance: TACROLIMUS
     Indication: Chapped lips
  3. TACROLIMUS [Suspect]
     Active Substance: TACROLIMUS
     Indication: Lip erythema
  4. TACROLIMUS [Suspect]
     Active Substance: TACROLIMUS
     Indication: Oral discomfort

REACTIONS (2)
  - Product use issue [Unknown]
  - Product use in unapproved indication [Unknown]
